FAERS Safety Report 17490979 (Version 2)
Quarter: 2020Q2

REPORT INFORMATION
  Report Type: Spontaneous
  Country: US (occurrence: US)
  Receive Date: 20200303
  Receipt Date: 20200429
  Transmission Date: 20200713
  Serious: Yes (Other)
  Sender: FDA-Public Use
  Company Number: US-BAYER-2020-035601

PATIENT
  Age: 38 Year
  Sex: Female

DRUGS (1)
  1. KYLEENA [Suspect]
     Active Substance: LEVONORGESTREL
     Dosage: 17.5 ?G PER DAY, CONTINUOUSLY
     Route: 015
     Dates: start: 20200220, end: 202002

REACTIONS (11)
  - Device use issue [None]
  - Procedural pain [Recovered/Resolved]
  - Back pain [Not Recovered/Not Resolved]
  - Cold sweat [Not Recovered/Not Resolved]
  - Menstruation delayed [None]
  - Post procedural haemorrhage [Not Recovered/Not Resolved]
  - Complication of device insertion [None]
  - Abdominal pain upper [Not Recovered/Not Resolved]
  - Procedural dizziness [Not Recovered/Not Resolved]
  - Malaise [Not Recovered/Not Resolved]
  - Dizziness [Not Recovered/Not Resolved]

NARRATIVE: CASE EVENT DATE: 2020
